FAERS Safety Report 20333087 (Version 2)
Quarter: 2022Q1

REPORT INFORMATION
  Report Type: Report from Study
  Country: US (occurrence: US)
  Receive Date: 20220113
  Receipt Date: 20220204
  Transmission Date: 20220423
  Serious: Yes (Hospitalization, Disabling, Other)
  Sender: FDA-Public Use
  Company Number: US-SANOFI-00927558

PATIENT
  Age: 84 Year
  Sex: Male

DRUGS (3)
  1. DUPILUMAB [Suspect]
     Active Substance: DUPILUMAB
     Indication: Dermatitis atopic
     Dosage: 600 MG, 1X
     Route: 058
     Dates: start: 20201116, end: 20201116
  2. DUPILUMAB [Suspect]
     Active Substance: DUPILUMAB
     Dosage: 300 MG, QOW
     Route: 058
     Dates: start: 20201130
  3. ELIQUIS [Suspect]
     Active Substance: APIXABAN

REACTIONS (8)
  - Dyspnoea [Not Recovered/Not Resolved]
  - Bedridden [Unknown]
  - Fall [Recovering/Resolving]
  - Head injury [Recovering/Resolving]
  - Haemorrhage [Unknown]
  - Hearing aid user [Unknown]
  - Hypoacusis [Unknown]
  - Hospitalisation [Recovering/Resolving]

NARRATIVE: CASE EVENT DATE: 20211101
